FAERS Safety Report 23772710 (Version 1)
Quarter: 2024Q2

REPORT INFORMATION
  Report Type: Spontaneous
  Country: US (occurrence: None)
  Receive Date: 20240422
  Receipt Date: 20240422
  Transmission Date: 20240716
  Serious: No
  Sender: FDA-Public Use
  Company Number: None

PATIENT
  Age: 66 Year
  Sex: Male

DRUGS (4)
  1. VEMLIDY [Suspect]
     Active Substance: TENOFOVIR ALAFENAMIDE FUMARATE
     Dates: start: 20230612, end: 20240403
  2. PREZISTA [Suspect]
     Active Substance: DARUNAVIR ETHANOLATE
     Dates: start: 20230613, end: 20240403
  3. ABACAVIR\LAMIVUDINE [Suspect]
     Active Substance: ABACAVIR\LAMIVUDINE
     Dates: start: 20230612, end: 20240403
  4. RITONAVIR [Suspect]
     Active Substance: RITONAVIR
     Dates: start: 20230612, end: 20240403

REACTIONS (1)
  - Death [None]

NARRATIVE: CASE EVENT DATE: 20240403
